FAERS Safety Report 10343995 (Version 2)
Quarter: 2014Q3

REPORT INFORMATION
  Report Type: Report from Study
  Country: NL (occurrence: NL)
  Receive Date: 20140728
  Receipt Date: 20140728
  Transmission Date: 20150326
  Serious: Yes (Death, Hospitalization)
  Sender: FDA-Public Use
  Company Number: NL-ROCHE-1436673

PATIENT
  Age: 65 Year
  Sex: Female

DRUGS (8)
  1. CODEIN [Concomitant]
     Active Substance: CODEINE
     Route: 065
     Dates: start: 20140303
  2. FRAGMIN [Concomitant]
     Active Substance: DALTEPARIN SODIUM
     Dosage: 15000 U
     Route: 065
     Dates: start: 20130701
  3. PACLITAXEL. [Suspect]
     Active Substance: PACLITAXEL
     Indication: BREAST CANCER
     Route: 042
     Dates: start: 20130808, end: 20140515
  4. FUROSEMIDE. [Concomitant]
     Active Substance: FUROSEMIDE
     Route: 065
     Dates: start: 20140519
  5. SPIRIVA [Concomitant]
     Active Substance: TIOTROPIUM BROMIDE MONOHYDRATE
     Route: 065
     Dates: start: 20140430
  6. BEVACIZUMAB [Suspect]
     Active Substance: BEVACIZUMAB
     Indication: BREAST CANCER
     Route: 042
     Dates: start: 20130808, end: 20140508
  7. TRIAMCINOLON CREME [Concomitant]
     Route: 065
     Dates: start: 20140430
  8. OMEPRAZOLE. [Concomitant]
     Active Substance: OMEPRAZOLE
     Route: 065
     Dates: start: 20130513

REACTIONS (2)
  - Metastases to lung [Fatal]
  - Embolism [Fatal]

NARRATIVE: CASE EVENT DATE: 20140520
